FAERS Safety Report 10580429 (Version 2)
Quarter: 2015Q1

REPORT INFORMATION
  Report Type: Spontaneous
  Country: US (occurrence: US)
  Receive Date: 20141112
  Receipt Date: 20150204
  Transmission Date: 20150720
  Serious: Yes (Other)
  Sender: FDA-Public Use
  Company Number: US-AMGEN-USASP2014086099

PATIENT
  Age: 59 Year
  Sex: Male
  Weight: 71.66 kg

DRUGS (19)
  1. CALCITRIOL. [Concomitant]
     Active Substance: CALCITRIOL
  2. DOXAZOSIN [Concomitant]
     Active Substance: DOXAZOSIN\DOXAZOSIN MESYLATE
  3. PHOSLO [Concomitant]
     Active Substance: CALCIUM ACETATE
  4. SODIUM BICARBONATE. [Concomitant]
     Active Substance: SODIUM BICARBONATE
  5. VITAMIN D                          /00107901/ [Concomitant]
     Active Substance: ERGOCALCIFEROL
  6. DAPSONE. [Concomitant]
     Active Substance: DAPSONE
     Dosage: UNK
  7. CELLCEPT [Concomitant]
     Active Substance: MYCOPHENOLATE MOFETIL\MYCOPHENOLATE MOFETIL HYDROCHLORIDE
  8. FUROSEMIDE. [Concomitant]
     Active Substance: FUROSEMIDE
  9. ARANESP [Suspect]
     Active Substance: DARBEPOETIN ALFA
     Indication: NEPHROGENIC ANAEMIA
     Dosage: 200 MUG, Q2WK
     Route: 065
     Dates: start: 2014
  10. ATENOLOL. [Concomitant]
     Active Substance: ATENOLOL
  11. CATAPRES                           /00171101/ [Concomitant]
     Active Substance: CLONIDINE
  12. ATORVASTATIN [Concomitant]
     Active Substance: ATORVASTATIN
  13. PREDNISONE. [Concomitant]
     Active Substance: PREDNISONE
  14. RANEXA [Concomitant]
     Active Substance: RANOLAZINE
  15. POTASSIUM [Concomitant]
     Active Substance: POTASSIUM
  16. CLARITIN [Concomitant]
     Active Substance: LORATADINE
  17. ROBITUSSIN (GUAIFENESIN) [Concomitant]
     Active Substance: GUAIFENESIN
  18. TEMAZEPAM. [Concomitant]
     Active Substance: TEMAZEPAM
  19. ZOLOFT [Concomitant]
     Active Substance: SERTRALINE HYDROCHLORIDE

REACTIONS (2)
  - No therapeutic response [Recovered/Resolved]
  - Haemoglobin abnormal [Unknown]
